FAERS Safety Report 9898472 (Version 1)
Quarter: 2014Q1

REPORT INFORMATION
  Report Type: Spontaneous
  Country: FR (occurrence: FR)
  Receive Date: 20140214
  Receipt Date: 20140214
  Transmission Date: 20141002
  Serious: Yes (Hospitalization)
  Sender: FDA-Public Use
  Company Number: FR-B.I. PHARMACEUTICALS,INC./RIDGEFIELD-2014-BI-06330FF

PATIENT
  Age: 66 Year
  Sex: Male

DRUGS (13)
  1. TWYNSTA [Suspect]
     Indication: HYPERTENSION
     Dosage: STRENGTH : 80MG/10MG
     Route: 048
  2. ESIDREX [Suspect]
     Indication: HYPERTENSION
     Dosage: 12.5 MG
     Route: 048
     Dates: end: 201311
  3. TERALITHE LP [Suspect]
     Indication: BIPOLAR DISORDER
     Dosage: 400 MG
     Route: 048
     Dates: end: 201311
  4. KARDEGIC 75MG [Concomitant]
     Route: 048
  5. ATORVASTATINE [Concomitant]
     Route: 048
  6. ZOLPIDEM [Concomitant]
  7. MOXONIDINE [Concomitant]
  8. SECTRAL LP 500MG [Concomitant]
  9. MIANSERINE HYDROCHLORIDE [Concomitant]
  10. RILMENIDINE [Concomitant]
  11. LEVOTHYROX 25MCG [Concomitant]
  12. LANSOPRAZOLE [Concomitant]
  13. GLIMEPIRIDE [Concomitant]

REACTIONS (5)
  - Confusional state [Recovered/Resolved]
  - Fall [Recovered/Resolved]
  - Renal failure acute [Recovered/Resolved]
  - Antipsychotic drug level above therapeutic [Recovered/Resolved]
  - Hyperkalaemia [Recovered/Resolved]
